FAERS Safety Report 4754136-6 (Version None)
Quarter: 2005Q3

REPORT INFORMATION
  Report Type: 
  Country: None (occurrence: None)
  Receive Date: 20050825
  Receipt Date: 20050613
  Transmission Date: 20060218
  Serious: Yes (Other)
  Sender: FDA-Public Use
  Company Number: HQWYE477915JUN05

PATIENT
  Age: 5 Year
  Sex: Female
  Weight: 20.88 kg

DRUGS (1)
  1. CHILDREN'S ADVIL [Suspect]
     Indication: PYREXIA
     Dosage: 1 DOSE 1X PER 1 DAY, ORAL
     Route: 048
     Dates: start: 20050603, end: 20050603

REACTIONS (3)
  - ABNORMAL BEHAVIOUR [None]
  - CRYING [None]
  - PSYCHOMOTOR HYPERACTIVITY [None]
